FAERS Safety Report 9542055 (Version 1)
Quarter: 2013Q3

REPORT INFORMATION
  Report Type: Spontaneous
  Country: US (occurrence: US)
  Receive Date: 20130923
  Receipt Date: 20130923
  Transmission Date: 20140515
  Serious: Yes (Hospitalization)
  Sender: FDA-Public Use
  Company Number: US-JNJFOC-20130910055

PATIENT
  Age: 75 Year
  Sex: Male
  Weight: 136.08 kg

DRUGS (2)
  1. XARELTO [Suspect]
     Indication: THROMBOSIS PROPHYLAXIS
     Dosage: FOR 30 DAYS
     Route: 048
     Dates: start: 20130722, end: 20130828
  2. XARELTO [Suspect]
     Indication: KNEE ARTHROPLASTY
     Dosage: FOR 30 DAYS
     Route: 048
     Dates: start: 20130722, end: 20130828

REACTIONS (1)
  - Pulmonary embolism [Unknown]
